FAERS Safety Report 9549208 (Version 2)
Quarter: 2016Q1

REPORT INFORMATION
  Report Type: Spontaneous
  Country: CA (occurrence: CA)
  Receive Date: 20130924
  Receipt Date: 20160112
  Transmission Date: 20160526
  Serious: Yes (Disabling)
  Sender: FDA-Public Use
  Company Number: CA-009507513-1309CAN009892

PATIENT
  Age: 42 Year
  Sex: Female
  Weight: 75.74 kg

DRUGS (2)
  1. FOLLITROPIN BETA [Suspect]
     Active Substance: FOLLITROPIN
     Indication: INFERTILITY
     Dosage: UNK
     Route: 065
     Dates: start: 201105, end: 201109
  2. MENOPUR [Suspect]
     Active Substance: FOLLICLE STIMULATING HORMONE BETA POLYPEPTIDE\LUTROPIN ALFA
     Indication: PRODUCT USED FOR UNKNOWN INDICATION
     Route: 065

REACTIONS (8)
  - Weight decreased [Unknown]
  - Muscular weakness [Unknown]
  - Irritability [Unknown]
  - Frequent bowel movements [Unknown]
  - Alopecia [Unknown]
  - Hypothyroidism [Unknown]
  - Tachycardia [Unknown]
  - Feeling hot [Unknown]

NARRATIVE: CASE EVENT DATE: 201211
